FAERS Safety Report 12633639 (Version 1)
Quarter: 2016Q3

REPORT INFORMATION
  Report Type: Spontaneous
  Country: US (occurrence: None)
  Receive Date: 20160808
  Receipt Date: 20160808
  Transmission Date: 20161109
  Serious: Yes (Disabling)
  Sender: FDA-Public Use
  Company Number: None

PATIENT
  Age: 60 Year
  Sex: Female
  Weight: 78.93 kg

DRUGS (2)
  1. LEVOTHYROXIN [Concomitant]
     Active Substance: LEVOTHYROXINE
  2. TAMOXIFEN 00591-2473-30, 20 MG [Suspect]
     Active Substance: TAMOXIFEN
     Indication: BREAST CANCER
     Dosage: 1 TABLET (S)  IN THE MORNING TAKEN BY MOUTH
     Route: 048

REACTIONS (9)
  - Erectile dysfunction [None]
  - Urethritis [None]
  - Cystitis [None]
  - Night sweats [None]
  - Suicidal ideation [None]
  - Hot flush [None]
  - Dry eye [None]
  - Agitation [None]
  - Urinary incontinence [None]

NARRATIVE: CASE EVENT DATE: 20160728
